FAERS Safety Report 9379894 (Version 1)
Quarter: 2013Q3

REPORT INFORMATION
  Report Type: Spontaneous
  Country: SI (occurrence: SI)
  Receive Date: 20130702
  Receipt Date: 20130702
  Transmission Date: 20140515
  Serious: Yes (Death, Other)
  Sender: FDA-Public Use
  Company Number: SI-PFIZER INC-2013195421

PATIENT
  Age: 71 Year
  Sex: Female

DRUGS (20)
  1. CISPLATIN TEVA [Suspect]
     Indication: SMALL CELL LUNG CANCER
     Dosage: 80 MG/M2, 75% (CYCLICAL)
     Route: 042
     Dates: start: 20130523, end: 20130523
  2. EPOSIN [Suspect]
     Indication: SMALL CELL LUNG CANCER
     Dosage: 100 MG/M2, 75% (CYCLICAL) FOR THREE DAYS
     Route: 042
     Dates: start: 20130522, end: 20130524
  3. ULTOP [Concomitant]
     Dosage: 40 MG, 1X/DAY
     Route: 048
     Dates: start: 20130507, end: 20130529
  4. TERTENSIF - SLOW RELEASE [Concomitant]
     Dosage: 1.5 MG, 1X/DAY
     Route: 048
     Dates: start: 2012, end: 20130529
  5. CONCOR [Concomitant]
     Dosage: 5 MG, 1X/DAY
     Route: 048
     Dates: start: 2012, end: 20130529
  6. LERCAPRESS [Concomitant]
     Dosage: 10 MG, 1X/DAY
     Route: 048
     Dates: start: 2012, end: 20130529
  7. MEDROL [Concomitant]
     Dosage: 32 MG, 1X/DAY
     Route: 048
     Dates: start: 20130507, end: 20130521
  8. MEDROL [Concomitant]
     Dosage: 32 MG, 1X/DAY
     Route: 048
     Dates: start: 20130525, end: 20130529
  9. FRAGMIN [Concomitant]
     Dosage: 5000 IU, 1X/DAY
     Route: 058
     Dates: start: 20130522, end: 20130529
  10. KODEIN ALKALOID [Concomitant]
     Dosage: 30 MG, 2X/DAY
     Route: 048
     Dates: start: 20130507, end: 20130529
  11. EPUFEN [Concomitant]
     Dosage: 12.5 UG, CYCLIC (1 IN 3 DAY)
     Route: 062
     Dates: start: 20130509, end: 20130529
  12. SEVREDOL [Concomitant]
     Dosage: 10 MG, AS NEEDED
     Route: 048
     Dates: start: 20130522, end: 20130529
  13. BEKUNIS [Concomitant]
     Dosage: 20 MG, 2X/DAY
     Route: 048
     Dates: start: 20130522, end: 20130529
  14. DAKTARIN [Concomitant]
     Dosage: 20 MG/G (AS REQUIRED)
     Route: 048
     Dates: start: 20130522, end: 20130529
  15. CELEBREX [Concomitant]
     Dosage: 2X2 TBL/DAY (1 DOSAGE FORMS,2 IN 12 HR)
     Route: 048
     Dates: start: 20130522, end: 20130529
  16. DEXAMETHASONE [Concomitant]
     Dosage: 8 MG/DAY
     Route: 042
     Dates: start: 20130522, end: 20130522
  17. DEXAMETHASONE [Concomitant]
     Dosage: 20 MG/DAY
     Route: 042
     Dates: start: 20130523, end: 20130523
  18. DEXAMETHASONE [Concomitant]
     Dosage: 8 MG, 1X/DAY
     Route: 042
     Dates: start: 20130524, end: 20130524
  19. GRANISETRON [Concomitant]
     Dosage: 1 MG/DAY
     Route: 042
     Dates: start: 20130522, end: 20130522
  20. GRANISETRON [Concomitant]
     Dosage: 3 MG/DAY
     Route: 042
     Dates: start: 20130523, end: 20130523

REACTIONS (4)
  - Death [Fatal]
  - Abdominal pain [Unknown]
  - Constipation [Unknown]
  - Vomiting [Unknown]
